FAERS Safety Report 10229318 (Version 2)
Quarter: 2014Q3

REPORT INFORMATION
  Report Type: Report from Study
  Country: US (occurrence: US)
  Receive Date: 20140611
  Receipt Date: 20140815
  Transmission Date: 20150326
  Serious: Yes (Other)
  Sender: FDA-Public Use
  Company Number: US-BIOGENIDEC-2014BI052987

PATIENT
  Age: 38 Year
  Sex: Female

DRUGS (1)
  1. TECFIDERA [Suspect]
     Active Substance: DIMETHYL FUMARATE
     Indication: MULTIPLE SCLEROSIS
     Route: 048
     Dates: start: 20131126

REACTIONS (4)
  - Urticaria [Recovered/Resolved]
  - Thrombosis [Not Recovered/Not Resolved]
  - Mouth swelling [Recovered/Resolved]
  - Pulmonary embolism [Not Recovered/Not Resolved]
